FAERS Safety Report 4511881-5 (Version None)
Quarter: 2004Q4

REPORT INFORMATION
  Report Type: 
  Country: None (occurrence: None)
  Receive Date: 20041129
  Receipt Date: 20041116
  Transmission Date: 20050328
  Serious: Yes (Death, Hospitalization)
  Sender: FDA-Public Use
  Company Number: JP-JNJFOC-20041103943

PATIENT
  Age: 75 Year
  Sex: Male

DRUGS (4)
  1. LEVOFLOCAXIN [Suspect]
     Route: 049
     Dates: start: 20041107
  2. PLACEBO [Suspect]
     Route: 049
     Dates: start: 20041107
  3. TAXOTERE [Concomitant]
  4. CARBOPLATIN [Concomitant]

REACTIONS (5)
  - ANAEMIA [None]
  - LUNG NEOPLASM MALIGNANT [None]
  - MALIGNANT NEOPLASM PROGRESSION [None]
  - OEDEMA [None]
  - PROTEIN TOTAL DECREASED [None]
